FAERS Safety Report 7471276-1 (Version None)
Quarter: 2011Q2

REPORT INFORMATION
  Report Type: 
  Country: None (occurrence: None)
  Receive Date: 20110510
  Receipt Date: 20110428
  Transmission Date: 20111010
  Serious: Yes (Death, Congenital Anomaly)
  Sender: FDA-Public Use
  Company Number: FR-GILEAD-2011-0039035

PATIENT

DRUGS (3)
  1. TRUVADA [Suspect]
     Indication: HIV INFECTION
     Route: 064
  2. REYATAZ [Suspect]
     Indication: HIV INFECTION
     Route: 064
  3. NORVIR [Suspect]
     Indication: HIV INFECTION
     Route: 064

REACTIONS (1)
  - HEART DISEASE CONGENITAL [None]
